FAERS Safety Report 5511043-9 (Version None)
Quarter: 2007Q4

REPORT INFORMATION
  Report Type: 
  Country: None (occurrence: None)
  Receive Date: 20071102
  Receipt Date: 20071029
  Transmission Date: 20080405
  Serious: Yes (Life-Threatening)
  Sender: FDA-Public Use
  Company Number: 200712367

PATIENT
  Age: 29 Month
  Sex: Female
  Weight: 13 kg

DRUGS (1)
  1. SANDOGLOBULIN [Suspect]
     Indication: BLOOD IMMUNOGLOBULIN G DECREASED
     Dosage: 5 G DAILY IV
     Route: 042
     Dates: start: 20070821, end: 20070821

REACTIONS (3)
  - ANXIETY [None]
  - ERYTHEMA [None]
  - TREMOR [None]
